FAERS Safety Report 17459173 (Version 1)
Quarter: 2020Q1

REPORT INFORMATION
  Report Type: Spontaneous
  Country: US (occurrence: US)
  Receive Date: 20200225
  Receipt Date: 20200225
  Transmission Date: 20200409
  Serious: No
  Sender: FDA-Public Use
  Company Number: US-IGSA-SR10009084

PATIENT
  Age: 57 Year
  Sex: Female
  Weight: 83.6 kg

DRUGS (33)
  1. LYRICA [Concomitant]
     Active Substance: PREGABALIN
  2. NAPROXEN. [Concomitant]
     Active Substance: NAPROXEN
  3. BACLOFEN. [Concomitant]
     Active Substance: BACLOFEN
  4. BUDESONIDE. [Concomitant]
     Active Substance: BUDESONIDE
  5. FERROUS SULFATE. [Concomitant]
     Active Substance: FERROUS SULFATE
  6. ONDANSETRON [Concomitant]
     Active Substance: ONDANSETRON
  7. PROAIR HFA [Concomitant]
     Active Substance: ALBUTEROL SULFATE
  8. FLUTICASONE. [Concomitant]
     Active Substance: FLUTICASONE
  9. MECLIZINE [Concomitant]
     Active Substance: MECLIZINE HYDROCHLORIDE
     Indication: DIZZINESS
  10. SAVAYSA [Concomitant]
     Active Substance: EDOXABAN TOSYLATE
  11. PROLASTIN-C LIQUID [Suspect]
     Active Substance: .ALPHA.1-PROTEINASE INHIBITOR HUMAN
     Indication: EMPHYSEMA
     Dosage: UNK UNK, Q.WK.
     Route: 042
  12. BENZONATATE. [Concomitant]
     Active Substance: BENZONATATE
  13. IBUPROFEN. [Concomitant]
     Active Substance: IBUPROFEN
  14. INCRUSE ELLIPTA [Concomitant]
     Active Substance: UMECLIDINIUM BROMIDE
  15. OMEPRAZOLE. [Concomitant]
     Active Substance: OMEPRAZOLE
  16. ACETAMINOPHEN AND CODEINE [Concomitant]
     Active Substance: ACETAMINOPHEN\CODEINE PHOSPHATE
  17. PROMETHAZINE [Concomitant]
     Active Substance: PROMETHAZINE HYDROCHLORIDE
  18. AZELASTINE. [Concomitant]
     Active Substance: AZELASTINE HYDROCHLORIDE
  19. BREO ELLIPTA [Concomitant]
     Active Substance: FLUTICASONE FUROATE\VILANTEROL TRIFENATATE
  20. CYCLOBENZAPRINE. [Concomitant]
     Active Substance: CYCLOBENZAPRINE
  21. FLUOXETINE [Concomitant]
     Active Substance: FLUOXETINE HYDROCHLORIDE
  22. MONTELUKAST [Concomitant]
     Active Substance: MONTELUKAST SODIUM
  23. SUCRALFATE. [Concomitant]
     Active Substance: SUCRALFATE
  24. TOPIRAMATE. [Concomitant]
     Active Substance: TOPIRAMATE
  25. MELOXICAM. [Concomitant]
     Active Substance: MELOXICAM
  26. SPIRIVA [Concomitant]
     Active Substance: TIOTROPIUM BROMIDE MONOHYDRATE
  27. SUMATRIPTAN. [Concomitant]
     Active Substance: SUMATRIPTAN
  28. PROLASTIN-C LIQUID [Suspect]
     Active Substance: .ALPHA.1-PROTEINASE INHIBITOR HUMAN
     Indication: ALPHA-1 ANTI-TRYPSIN DEFICIENCY
     Dosage: 5018 MG, Q.WK.
     Route: 042
     Dates: start: 20190903
  29. DIAZEPAM. [Concomitant]
     Active Substance: DIAZEPAM
  30. ENOXAPARIN [Concomitant]
     Active Substance: ENOXAPARIN
  31. IPRATROPIUM/ALBUTEROL [Concomitant]
     Active Substance: ALBUTEROL\IPRATROPIUM
  32. MUCINEX [Concomitant]
     Active Substance: GUAIFENESIN
  33. TRELEGY ELLIPTA [Concomitant]
     Active Substance: FLUTICASONE FUROATE\UMECLIDINIUM BROMIDE\VILANTEROL TRIFENATATE

REACTIONS (3)
  - Dizziness [Not Recovered/Not Resolved]
  - Nausea [Not Recovered/Not Resolved]
  - Cold sweat [Not Recovered/Not Resolved]

NARRATIVE: CASE EVENT DATE: 20190903
